FAERS Safety Report 4583291-6 (Version None)
Quarter: 2005Q1

REPORT INFORMATION
  Report Type: 
  Country: None (occurrence: None)
  Receive Date: 20050125
  Receipt Date: 20041020
  Transmission Date: 20050727
  Serious: No
  Sender: FDA-Public Use
  Company Number: USA041080284

PATIENT
  Age: 76 Year
  Sex: Female
  Weight: 57 kg

DRUGS (5)
  1. FORTEO [Suspect]
     Indication: OSTEOPOROSIS
     Dosage: 20 UG/1 DAY
     Dates: start: 20040903, end: 20041011
  2. LISINOPRIL [Concomitant]
  3. HYDROCHLOROTHIAZIDE [Concomitant]
  4. PRILOSEC (OMEPRAZOLE RATIOPHARM) [Concomitant]
  5. OSTEO PLUS [Concomitant]

REACTIONS (9)
  - FATIGUE [None]
  - FEELING ABNORMAL [None]
  - FLUID RETENTION [None]
  - MICTURITION URGENCY [None]
  - NASOPHARYNGITIS [None]
  - POLLAKIURIA [None]
  - SNEEZING [None]
  - WEIGHT FLUCTUATION [None]
  - WEIGHT INCREASED [None]
